FAERS Safety Report 21828075 (Version 1)
Quarter: 2023Q1

REPORT INFORMATION
  Report Type: Spontaneous
  Country: FR (occurrence: FR)
  Receive Date: 20230106
  Receipt Date: 20230106
  Transmission Date: 20230417
  Serious: Yes (Hospitalization)
  Sender: FDA-Public Use
  Company Number: FR-AFSSAPS-TS20222589

PATIENT
  Age: 30 Year
  Sex: Female

DRUGS (1)
  1. IBUPROFEN [Suspect]
     Active Substance: IBUPROFEN
     Indication: Pain
     Dosage: UNK
     Route: 048
     Dates: start: 20221114, end: 20221116

REACTIONS (2)
  - Endometritis [Recovered/Resolved]
  - Bacteraemia [Recovered/Resolved]

NARRATIVE: CASE EVENT DATE: 20221116
